FAERS Safety Report 6617590-0 (Version None)
Quarter: 2010Q1

REPORT INFORMATION
  Report Type: 
  Country: None (occurrence: None)
  Receive Date: 20100308
  Receipt Date: 20100304
  Transmission Date: 20100710
  Serious: Yes (Other)
  Sender: FDA-Public Use
  Company Number: US-B.I. PHARMACEUTICALS,INC./RIDGEFIELD-2010-BP-02604BP

PATIENT
  Sex: Female

DRUGS (2)
  1. AGGRENOX [Suspect]
  2. ACETYLSALICYLIC ACID [Suspect]

REACTIONS (1)
  - NEOPLASM MALIGNANT [None]
